FAERS Safety Report 14423473 (Version 2)
Quarter: 2018Q2

REPORT INFORMATION
  Report Type: Spontaneous
  Country: US (occurrence: US)
  Receive Date: 20180123
  Receipt Date: 20180420
  Transmission Date: 20180711
  Serious: No
  Sender: FDA-Public Use
  Company Number: US-TEVA-2017-US-826950

PATIENT
  Sex: Female

DRUGS (4)
  1. MYRBETRIQ [Interacting]
     Active Substance: MIRABEGRON
     Dosage: 25 MILLIGRAM DAILY;
     Dates: start: 201711
  2. AMIODARONE [Concomitant]
     Active Substance: AMIODARONE
     Route: 065
  3. WARFARIN [Suspect]
     Active Substance: WARFARIN
     Route: 065
  4. SYNTHROID [Concomitant]
     Active Substance: LEVOTHYROXINE SODIUM
     Dosage: DOSAGE STRENGTH: 75
     Route: 065

REACTIONS (4)
  - Pain in extremity [Recovered/Resolved]
  - Back pain [Recovered/Resolved]
  - Drug interaction [Recovered/Resolved]
  - Feeling abnormal [Recovered/Resolved]
